FAERS Safety Report 5867380-1 (Version None)
Quarter: 2008Q3

REPORT INFORMATION
  Report Type: 
  Country: None (occurrence: None)
  Receive Date: 20080902
  Receipt Date: 20080822
  Transmission Date: 20090109
  Serious: Yes (Other)
  Sender: FDA-Public Use
  Company Number: PHBS2008US05508

PATIENT
  Age: 27 Year
  Sex: Female
  Weight: 62.3 kg

DRUGS (13)
  1. OXYTOCIN [Suspect]
  2. NICARDIPINE HYDROCHLORIDE [Suspect]
  3. METHYLDOPA [Concomitant]
     Dosage: 500 MG, TID
  4. VITAMIN TAB [Concomitant]
  5. MAGNESIUM SULFATE [Concomitant]
     Dosage: 2 G/H
  6. SODIUM CITRATE [Concomitant]
     Dosage: 30 ML, UNK
     Route: 048
  7. METOCLOPRAMIDE [Concomitant]
     Dosage: 10 MG, UNK
  8. FAMOTIDINE [Concomitant]
     Dosage: 20 MG, UNK
     Route: 042
  9. MIDAZOLAM HCL [Concomitant]
  10. PHENYLEPHRINE [Concomitant]
  11. BUPIVACAINE [Concomitant]
  12. FENTANYL-25 [Concomitant]
  13. MORPHINE [Concomitant]

REACTIONS (3)
  - CARDIAC OUTPUT INCREASED [None]
  - MEAN ARTERIAL PRESSURE DECREASED [None]
  - VASCULAR RESISTANCE SYSTEMIC DECREASED [None]
